FAERS Safety Report 11281767 (Version 3)
Quarter: 2015Q3

REPORT INFORMATION
  Report Type: Spontaneous
  Country: US (occurrence: US)
  Receive Date: 20150717
  Receipt Date: 20150929
  Transmission Date: 20151125
  Serious: Yes (Life-Threatening, Hospitalization, Other)
  Sender: FDA-Public Use
  Company Number: US-ACTELION-A-NJ2015-120904

PATIENT
  Age: 66 Year
  Sex: Female

DRUGS (19)
  1. TRACLEER [Suspect]
     Active Substance: BOSENTAN
     Indication: PULMONARY ARTERIAL HYPERTENSION
     Dosage: 125 MG, BID
     Route: 048
     Dates: start: 201008, end: 20150625
  2. COLCRYS [Concomitant]
     Active Substance: COLCHICINE
  3. CALCIUM ACETATE NEPHRO [Concomitant]
     Active Substance: CALCIUM ACETATE
  4. METOPROLOL [Concomitant]
     Active Substance: METOPROLOL
     Dosage: UNK
     Dates: start: 2015
  5. NOVOLOG [Concomitant]
     Active Substance: INSULIN ASPART
  6. BISACODYL. [Concomitant]
     Active Substance: BISACODYL
     Dosage: UNK
     Dates: start: 2014
  7. COUMADIN [Concomitant]
     Active Substance: WARFARIN SODIUM
  8. METOCLOPRAMIDE. [Concomitant]
     Active Substance: METOCLOPRAMIDE
  9. BUTAMIDE [Concomitant]
  10. ATORVASTATIN [Concomitant]
     Active Substance: ATORVASTATIN
  11. PROTONIX [Concomitant]
     Active Substance: PANTOPRAZOLE SODIUM
  12. PROCRIT [Concomitant]
     Active Substance: ERYTHROPOIETIN
  13. ESCITALOPRAM [Concomitant]
     Active Substance: ESCITALOPRAM OXALATE
  14. TRACLEER [Suspect]
     Active Substance: BOSENTAN
     Dosage: 62.5 MG, BID
     Route: 048
     Dates: start: 201007, end: 201008
  15. COLACE [Concomitant]
     Active Substance: DOCUSATE SODIUM
  16. LEVEMIR [Concomitant]
     Active Substance: INSULIN DETEMIR
  17. LEVOTHYROXINE. [Concomitant]
     Active Substance: LEVOTHYROXINE
  18. NYSTATIN. [Concomitant]
     Active Substance: NYSTATIN
  19. FLORASTOR [Concomitant]
     Active Substance: SACCHAROMYCES CEREVISIAE

REACTIONS (18)
  - Asthenia [Unknown]
  - Nausea [Unknown]
  - Anaemia [Unknown]
  - Hepatitis [Unknown]
  - Dysphagia [Unknown]
  - Micturition disorder [Unknown]
  - Faeces discoloured [Unknown]
  - Urosepsis [Unknown]
  - Alanine aminotransferase increased [Recovered/Resolved]
  - Gastrointestinal haemorrhage [Recovering/Resolving]
  - Urinary tract infection [Recovering/Resolving]
  - Vomiting [Unknown]
  - Mental status changes [Unknown]
  - Hypotension [Unknown]
  - Pneumonia [Unknown]
  - Liver function test abnormal [Recovered/Resolved]
  - Toxicity to various agents [Recovering/Resolving]
  - Aspartate aminotransferase increased [Recovered/Resolved]
